FAERS Safety Report 16887543 (Version 5)
Quarter: 2020Q1

REPORT INFORMATION
  Report Type: Report from Study
  Country: US (occurrence: US)
  Receive Date: 20191005
  Receipt Date: 20200318
  Transmission Date: 20200409
  Serious: Yes (Other)
  Sender: FDA-Public Use
  Company Number: US-SUN PHARMACEUTICAL INDUSTRIES LTD-2019R1-222694

PATIENT
  Sex: Male

DRUGS (2)
  1. YONSA [Suspect]
     Active Substance: ABIRATERONE ACETATE
     Indication: PRODUCT USED FOR UNKNOWN INDICATION
     Dosage: UNK
     Route: 065
     Dates: start: 20190813
  2. YONSA [Suspect]
     Active Substance: ABIRATERONE ACETATE
     Dosage: CUT IN HALF TO TWO PILLS
     Route: 065

REACTIONS (2)
  - Cardiac disorder [Unknown]
  - Urinary tract infection [Unknown]
